FAERS Safety Report 6912952-6 (Version None)
Quarter: 2010Q3

REPORT INFORMATION
  Report Type: 
  Country: None (occurrence: None)
  Receive Date: 20100806
  Receipt Date: 20090414
  Transmission Date: 20110219
  Serious: No
  Sender: FDA-Public Use
  Company Number: US-PFIZER INC-2009176491

PATIENT
  Sex: Female
  Weight: 52.6 kg

DRUGS (1)
  1. DETROL LA [Suspect]
     Indication: MICTURITION URGENCY
     Dosage: 4 MG, 1X/DAY

REACTIONS (1)
  - DRUG INEFFECTIVE [None]
